FAERS Safety Report 4832132-8 (Version None)
Quarter: 2005Q4

REPORT INFORMATION
  Report Type: 
  Country: None (occurrence: None)
  Receive Date: 20051118
  Receipt Date: 20050726
  Transmission Date: 20060501
  Serious: Yes (Hospitalization, Disabling, Other)
  Sender: FDA-Public Use
  Company Number: US-MERCK-0507USA04190

PATIENT
  Age: 50 Year
  Sex: Female
  Weight: 84 kg

DRUGS (6)
  1. VIOXX [Suspect]
     Indication: OSTEOARTHRITIS
     Route: 048
     Dates: start: 20020501, end: 20040930
  2. CELEBREX [Concomitant]
     Indication: OSTEOARTHRITIS
     Route: 065
     Dates: start: 20030401, end: 20030701
  3. VICODIN [Concomitant]
     Indication: PAIN
     Route: 065
     Dates: start: 20030701, end: 20030901
  4. XANAX [Concomitant]
     Indication: ANXIETY
     Route: 065
     Dates: start: 20010101
  5. XANAX [Concomitant]
     Indication: PANIC ATTACK
     Route: 065
     Dates: start: 20010101
  6. ZESTORETIC [Concomitant]
     Indication: HYPERTENSION
     Route: 065
     Dates: start: 20000901

REACTIONS (19)
  - AFFECT LABILITY [None]
  - ANXIETY [None]
  - ATTENTION DEFICIT/HYPERACTIVITY DISORDER [None]
  - CEREBROVASCULAR ACCIDENT [None]
  - CHROMATURIA [None]
  - CONDITION AGGRAVATED [None]
  - DEPRESSION [None]
  - DYSPNOEA [None]
  - FALL [None]
  - FATIGUE [None]
  - GAIT DISTURBANCE [None]
  - MEMORY IMPAIRMENT [None]
  - MENINGIOMA [None]
  - OEDEMA PERIPHERAL [None]
  - SHOULDER PAIN [None]
  - SLEEP DISORDER [None]
  - STOMACH DISCOMFORT [None]
  - TINNITUS [None]
  - WEIGHT INCREASED [None]
